FAERS Safety Report 23995176 (Version 1)
Quarter: 2024Q2

REPORT INFORMATION
  Report Type: Spontaneous
  Country: US (occurrence: None)
  Receive Date: 20240619
  Receipt Date: 20240619
  Transmission Date: 20240716
  Serious: Yes (unspecified)
  Sender: FDA-Public Use
  Company Number: None

PATIENT
  Age: 66 Year
  Sex: Female

DRUGS (1)
  1. HUMIRA [Suspect]
     Active Substance: ADALIMUMAB
     Indication: Psoriatic arthropathy
     Dosage: FREQUENCY : EVERY OTHER WEEK;?

REACTIONS (8)
  - Injection site rash [None]
  - Arthritis [None]
  - Exostosis [None]
  - Back disorder [None]
  - Discomfort [None]
  - Incontinence [None]
  - Feeling abnormal [None]
  - Insomnia [None]
